FAERS Safety Report 9248315 (Version 2)
Quarter: 2013Q2

REPORT INFORMATION
  Report Type: Spontaneous
  Country: BR (occurrence: BR)
  Receive Date: 20130423
  Receipt Date: 20130524
  Transmission Date: 20140414
  Serious: Yes (Disabling, Other)
  Sender: FDA-Public Use
  Company Number: BR-ASTRAZENECA-2013SE24810

PATIENT
  Age: 981 Month
  Sex: Female
  Weight: 70 kg

DRUGS (6)
  1. OMEPRAZOLE (COMPOUNDED) [Suspect]
     Indication: DYSPEPSIA
     Route: 048
     Dates: start: 2010
  2. CRESTOR [Suspect]
     Indication: BLOOD CHOLESTEROL INCREASED
     Route: 048
     Dates: start: 2010
  3. DIOVAN [Concomitant]
     Indication: HYPERTENSION
     Dosage: DAILY
     Dates: start: 2010
  4. JANUVIA [Concomitant]
     Indication: DIABETES MELLITUS
     Dosage: DAILY
     Dates: start: 2010
  5. LEXAPRO [Concomitant]
     Indication: DEPRESSION
     Dates: start: 2009
  6. LEXAPRO [Concomitant]
     Indication: DEPRESSION

REACTIONS (5)
  - Fatigue [Recovered/Resolved]
  - Palpitations [Recovered/Resolved]
  - Fall [Recovered/Resolved]
  - Upper limb fracture [Recovering/Resolving]
  - Anxiety [Recovered/Resolved]
